FAERS Safety Report 9115991 (Version 1)
Quarter: 2013Q1

REPORT INFORMATION
  Report Type: Spontaneous
  Country: US (occurrence: US)
  Receive Date: 20130225
  Receipt Date: 20130225
  Transmission Date: 20140127
  Serious: Yes (Other)
  Sender: FDA-Public Use
  Company Number: US-ELI_LILLY_AND_COMPANY-US201302006892

PATIENT
  Sex: Male
  Weight: 93.88 kg

DRUGS (2)
  1. PROZAC [Suspect]
     Dosage: 1 DF, EACH EVENING
  2. HYDREA [Concomitant]
     Dosage: UNK, EACH EVENING

REACTIONS (3)
  - Ligament rupture [Unknown]
  - Gait disturbance [Recovered/Resolved]
  - Fatigue [Recovered/Resolved]
